FAERS Safety Report 7149236-X (Version None)
Quarter: 2010Q4

REPORT INFORMATION
  Report Type: 
  Country: None (occurrence: None)
  Receive Date: 20101209
  Receipt Date: 20101130
  Transmission Date: 20110411
  Serious: Yes (Hospitalization)
  Sender: FDA-Public Use
  Company Number: US-ASTRAZENECA-2010SE56668

PATIENT
  Sex: Male

DRUGS (2)
  1. NEXIUM [Suspect]
     Indication: GASTROOESOPHAGEAL REFLUX DISEASE
     Route: 048
  2. NEXIUM [Suspect]
     Route: 048
     Dates: start: 20100101

REACTIONS (5)
  - BOWEL MOVEMENT IRREGULARITY [None]
  - CHOLELITHIASIS [None]
  - DIARRHOEA [None]
  - DIVERTICULITIS [None]
  - POSTOPERATIVE ADHESION [None]
